FAERS Safety Report 4389454-7 (Version None)
Quarter: 2004Q3

REPORT INFORMATION
  Report Type: 
  Country: None (occurrence: None)
  Receive Date: 20040702
  Receipt Date: 20040628
  Transmission Date: 20050211
  Serious: Yes (Hospitalization)
  Sender: FDA-Public Use
  Company Number: PHRM2004FR02222

PATIENT
  Age: 39 Year
  Sex: Female

DRUGS (1)
  1. AREDIA [Suspect]
     Dosage: 1 DF, ONCE/SINGLE
     Route: 042
     Dates: start: 20040515, end: 20040515

REACTIONS (6)
  - BLOOD AMYLASE INCREASED [None]
  - BONE PAIN [None]
  - CHEST PAIN [None]
  - LIPASE INCREASED [None]
  - MYALGIA [None]
  - THROMBOCYTOPENIA [None]
